FAERS Safety Report 12437356 (Version 1)
Quarter: 2016Q2

REPORT INFORMATION
  Report Type: Spontaneous
  Country: AU (occurrence: AU)
  Receive Date: 20160606
  Receipt Date: 20160606
  Transmission Date: 20160815
  Serious: Yes (Life-Threatening, Other)
  Sender: FDA-Public Use
  Company Number: AU-ACTAVIS PTY LTD-2016-11586

PATIENT
  Sex: Female

DRUGS (2)
  1. LAMOTRIGINE (UNKNOWN) [Suspect]
     Active Substance: LAMOTRIGINE
     Dosage: 200 MG, DAILY
  2. LAMOTRIGINE (UNKNOWN) [Suspect]
     Active Substance: LAMOTRIGINE
     Indication: BIPOLAR II DISORDER
     Dosage: AN INITIAL DOSE OF 25 MG NOCTE FOR A WEEK AND THEN INCREASED BY 25 MG A WEEKTO A MAXIMUM OF 200 MG
     Route: 065

REACTIONS (7)
  - Drug withdrawal syndrome [Unknown]
  - Thirst [Unknown]
  - Malaise [Unknown]
  - Headache [Unknown]
  - Nausea [Unknown]
  - Stevens-Johnson syndrome [Recovered/Resolved]
  - Dysgeusia [Unknown]
